FAERS Safety Report 24729740 (Version 3)
Quarter: 2025Q1

REPORT INFORMATION
  Report Type: Report from Study
  Country: KR (occurrence: KR)
  Receive Date: 20241213
  Receipt Date: 20250321
  Transmission Date: 20250408
  Serious: Yes (Other)
  Sender: GALDERMA
  Company Number: KR-GALDERMA-KR2024017855

PATIENT

DRUGS (1)
  1. TRIFAROTENE [Suspect]
     Active Substance: TRIFAROTENE
     Indication: Acne
     Route: 061
     Dates: start: 20240308

REACTIONS (2)
  - Pneumonia [Recovered/Resolved]
  - Upper respiratory tract infection [Recovered/Resolved]

NARRATIVE: CASE EVENT DATE: 20240411
